FAERS Safety Report 16280503 (Version 1)
Quarter: 2019Q2

REPORT INFORMATION
  Report Type: Spontaneous
  Country: FR (occurrence: FR)
  Receive Date: 20190507
  Receipt Date: 20190507
  Transmission Date: 20190711
  Serious: Yes (Hospitalization, Other)
  Sender: FDA-Public Use
  Company Number: FR-ACCORD-125327

PATIENT
  Age: 51 Year
  Sex: Male

DRUGS (2)
  1. MYCOPHENOLIC ACID. [Suspect]
     Active Substance: MYCOPHENOLIC ACID
     Indication: IMMUNOSUPPRESSANT DRUG THERAPY
     Dosage: TWICE A DAY
  2. TACROLIMUS. [Suspect]
     Active Substance: TACROLIMUS
     Indication: IMMUNOSUPPRESSANT DRUG THERAPY

REACTIONS (8)
  - Acute respiratory distress syndrome [Recovered/Resolved]
  - Acute kidney injury [Recovered/Resolved]
  - Leukocytosis [Recovered/Resolved]
  - Hepatocellular injury [Recovered/Resolved]
  - Septic shock [Recovered/Resolved]
  - Tularaemia [Recovered/Resolved]
  - Neutrophilia [Recovered/Resolved]
  - Ketoacidosis [Recovered/Resolved]
